FAERS Safety Report 21337418 (Version 2)
Quarter: 2022Q3

REPORT INFORMATION
  Report Type: Spontaneous
  Country: DK (occurrence: DK)
  Receive Date: 20220915
  Receipt Date: 20220926
  Transmission Date: 20221027
  Serious: Yes (Death)
  Sender: FDA-Public Use
  Company Number: None

PATIENT
  Age: 67 Year
  Sex: Female
  Weight: 49 kg

DRUGS (1)
  1. METFORMIN HYDROCHLORIDE [Suspect]
     Active Substance: METFORMIN HYDROCHLORIDE
     Indication: Diabetes mellitus
     Dosage: 2000 MILLIGRAM, QD (STRENGTH: 500 MG)
     Route: 048
     Dates: start: 201804, end: 20220801

REACTIONS (4)
  - Blood glucose fluctuation [Fatal]
  - Blood pressure fluctuation [Fatal]
  - Lactic acidosis [Fatal]
  - Nausea [Fatal]

NARRATIVE: CASE EVENT DATE: 20220731
